FAERS Safety Report 13997237 (Version 1)
Quarter: 2017Q3

REPORT INFORMATION
  Report Type: Spontaneous
  Country: US (occurrence: US)
  Receive Date: 20170921
  Receipt Date: 20170921
  Transmission Date: 20171128
  Serious: Yes (Other)
  Sender: FDA-Public Use
  Company Number: US-009507513-1709USA008579

PATIENT
  Age: 43 Year
  Sex: Male

DRUGS (3)
  1. TEMODAR [Suspect]
     Active Substance: TEMOZOLOMIDE
     Indication: PANCREATIC NEUROENDOCRINE TUMOUR METASTATIC
     Dosage: 200 MG/M2, ONCE DAILY, AT BEDTIME FOR 5 DAYS, DAYS 10-14, EVERY 28 DAYS, FOR A TOTAL OF 12 CYCLES
     Route: 048
     Dates: start: 201501, end: 201601
  2. CAPECITABINE. [Suspect]
     Active Substance: CAPECITABINE
     Indication: PANCREATIC NEUROENDOCRINE TUMOUR METASTATIC
     Dosage: 750MG/M2 TWICE DAILY FOR 14 DAYS, DAYS 1-14, FOR A TOTAL OF 12 CYCLES
     Route: 048
     Dates: start: 201501, end: 201601
  3. OCTREOTIDE. [Concomitant]
     Active Substance: OCTREOTIDE
     Indication: PANCREATIC NEUROENDOCRINE TUMOUR
     Dosage: UNK, EVERY 4 WEEKS
     Route: 030
     Dates: start: 201412

REACTIONS (2)
  - Cytopenia [Unknown]
  - Off label use [Unknown]

NARRATIVE: CASE EVENT DATE: 201501
